FAERS Safety Report 9133212 (Version 1)
Quarter: 2013Q1

REPORT INFORMATION
  Report Type: Spontaneous
  Country: FR (occurrence: FR)
  Receive Date: 20130301
  Receipt Date: 20130301
  Transmission Date: 20140127
  Serious: Yes (Hospitalization)
  Sender: FDA-Public Use
  Company Number: FR-BAXTER-2013BAX006907

PATIENT
  Sex: Female

DRUGS (5)
  1. ENDOXAN 2000 MG, LYOPHILISAT POUR SOLUTION INJECTABLE [Suspect]
     Indication: PLASMA CELL MYELOMA
     Dosage: ACCORDING TO CYCLE
     Route: 042
     Dates: start: 20120820, end: 20120927
  2. BUSILVEX [Suspect]
     Indication: PLASMA CELL MYELOMA
     Dosage: OVER 3 DAYS
     Route: 042
     Dates: start: 20121112
  3. ALKERAN [Suspect]
     Indication: PLASMA CELL MYELOMA
     Route: 048
     Dates: start: 20121112, end: 20121112
  4. ETOPOSIDE [Suspect]
     Indication: PLASMA CELL MYELOMA
     Route: 042
     Dates: start: 20120820, end: 20120927
  5. CISPLATINE [Suspect]
     Indication: PLASMA CELL MYELOMA
     Route: 042
     Dates: start: 20120820, end: 20120927

REACTIONS (1)
  - Venoocclusive disease [Recovering/Resolving]
